FAERS Safety Report 5817615-6 (Version None)
Quarter: 2008Q3

REPORT INFORMATION
  Report Type: 
  Country: None (occurrence: None)
  Receive Date: 20080722
  Receipt Date: 20080710
  Transmission Date: 20090109
  Serious: Yes (Hospitalization, Other)
  Sender: FDA-Public Use
  Company Number: FR-ROCHE-566101

PATIENT
  Sex: Male
  Weight: 84 kg

DRUGS (2)
  1. CAPECITABINE [Suspect]
     Dosage: FREQUENCY AND DOSAGE FORM NOT REPORTED. CUMULATIVE DOSE REPORTED AS 81000 MG.
     Route: 048
     Dates: start: 20071129
  2. RADIOTHERAPY MIXTURE [Suspect]
     Indication: DRUG USE FOR UNKNOWN INDICATION
     Dosage: DRUG NAME REPORTED AS RADIOTHERAPY. UNIT REPORTED AS GY. FREQUENCY AND DOSAGE FORM NOT REPORTED.
     Route: 065
     Dates: start: 20071129

REACTIONS (2)
  - ANASTOMOTIC COMPLICATION [None]
  - LUNG DISORDER [None]
